FAERS Safety Report 17012920 (Version 2)
Quarter: 2019Q4

REPORT INFORMATION
  Report Type: Report from Study
  Country: IT (occurrence: IT)
  Receive Date: 20191109
  Receipt Date: 20191212
  Transmission Date: 20200122
  Serious: Yes (Other)
  Sender: FDA-Public Use
  Company Number: IT-BRISTOL-MYERS SQUIBB COMPANY-BMS-2019-106557

PATIENT
  Age: 59 Year
  Sex: Male
  Weight: 150 kg

DRUGS (9)
  1. FERRO [FERROUS SULFATE] [Concomitant]
     Indication: PROPHYLAXIS
     Dosage: 30 MILLIGRAM DAILY
     Route: 048
     Dates: start: 20190224
  2. FUROSEMIDE. [Concomitant]
     Active Substance: FUROSEMIDE
     Indication: PROPHYLAXIS
     Dosage: 125 MILLIGRAM, BID
     Route: 048
     Dates: start: 20190105
  3. METFORMIN [Concomitant]
     Active Substance: METFORMIN HYDROCHLORIDE
     Indication: PROPHYLAXIS
     Dosage: 850 MILLIGRAM, BID
     Route: 048
     Dates: start: 20190301
  4. NEBIVOLOLO [Concomitant]
     Active Substance: NEBIVOLOL
     Indication: PROPHYLAXIS
     Dosage: 5 MILLIGRAM DAILY
     Route: 048
     Dates: start: 20190105
  5. APIXABAN [Suspect]
     Active Substance: APIXABAN
     Indication: PULMONARY EMBOLISM
     Dosage: 10 MILLIGRAM DAILY
     Route: 048
     Dates: start: 20190301, end: 20190404
  6. PREDNISONE. [Concomitant]
     Active Substance: PREDNISONE
     Indication: PROPHYLAXIS
     Dosage: 25 MILLIGRAM DAILY
     Route: 048
     Dates: start: 20190301
  7. GIANT [Concomitant]
     Active Substance: AMLODIPINE BESYLATE\OLMESARTAN MEDOXOMIL
     Indication: PROPHYLAXIS
     Dosage: 40 MILLIGRAM DAILY
     Route: 048
     Dates: start: 20190105
  8. OMEPRAZOLO [Concomitant]
     Active Substance: OMEPRAZOLE
     Indication: PROPHYLAXIS
     Dosage: 20 MILLIGRAM DAILY
     Route: 048
     Dates: start: 20190105
  9. EPREX [Concomitant]
     Active Substance: ERYTHROPOIETIN
     Indication: PROPHYLAXIS
     Dosage: 10000 INTERNATIONAL UNIT
     Route: 058
     Dates: start: 20190105

REACTIONS (1)
  - Anaemia [Not Recovered/Not Resolved]

NARRATIVE: CASE EVENT DATE: 20190404
